FAERS Safety Report 23987219 (Version 2)
Quarter: 2024Q3

REPORT INFORMATION
  Report Type: Report from Study
  Country: US (occurrence: None)
  Receive Date: 20240618
  Receipt Date: 20240710
  Transmission Date: 20241016
  Serious: Yes (Other)
  Sender: ASTRAZENECA
  Company Number: 2024A135122

PATIENT
  Age: 30002 Day
  Sex: Female
  Weight: 65.4 kg

DRUGS (1)
  1. BREZTRI [Suspect]
     Active Substance: BUDESONIDE\FORMOTEROL\GLYCOPYRROLATE
     Indication: Candida infection
     Dosage: 2 PUFFS DAILY
     Route: 055
     Dates: start: 20240310, end: 20240610

REACTIONS (13)
  - Fall [Unknown]
  - Contusion [Unknown]
  - Haemoptysis [Recovered/Resolved]
  - Oropharyngeal candidiasis [Unknown]
  - Oral candidiasis [Recovered/Resolved]
  - Taste disorder [Unknown]
  - Oropharyngeal pain [Unknown]
  - Cough [Unknown]
  - Dysphonia [Unknown]
  - Muscle spasms [Unknown]
  - Heart rate irregular [Unknown]
  - Throat irritation [Unknown]
  - Intentional product use issue [Unknown]

NARRATIVE: CASE EVENT DATE: 20240510
